FAERS Safety Report 15361567 (Version 1)
Quarter: 2018Q3

REPORT INFORMATION
  Report Type: Spontaneous
  Country: US (occurrence: US)
  Receive Date: 20180831
  Receipt Date: 20180831
  Transmission Date: 20181010
  Serious: No
  Sender: FDA-Public Use
  Company Number: None

PATIENT
  Age: 53 Year
  Sex: Female

DRUGS (1)
  1. HUMIRA [Suspect]
     Active Substance: ADALIMUMAB
     Indication: RHEUMATOID ARTHRITIS
     Dosage: ?          OTHER DOSE:40/0.8 MG/ML;?
     Route: 058
     Dates: start: 20170801

REACTIONS (3)
  - Skin exfoliation [None]
  - Tinea infection [None]
  - Dry skin [None]

NARRATIVE: CASE EVENT DATE: 20180813
